FAERS Safety Report 18973208 (Version 4)
Quarter: 2021Q3

REPORT INFORMATION
  Report Type: Report from Study
  Country: GB (occurrence: GB)
  Receive Date: 20210305
  Receipt Date: 20210820
  Transmission Date: 20211014
  Serious: Yes (Death, Other)
  Sender: FDA-Public Use
  Company Number: GB-MYLANLABS-2021M1012992

PATIENT
  Age: 49 Year
  Sex: Female

DRUGS (35)
  1. FILGRASTIM [Concomitant]
     Active Substance: FILGRASTIM
     Dosage: QD FOR SEVEN DAYS FROM DAY 4 OF CYCLE
     Route: 058
     Dates: start: 20151210, end: 20160305
  2. LETROZOLE. [Suspect]
     Active Substance: LETROZOLE
     Indication: BREAST CANCER METASTATIC
     Dosage: 2.5 MILLIGRAM, QD
     Route: 048
     Dates: start: 20160308, end: 20161123
  3. LANSOPRAZOLE. [Concomitant]
     Active Substance: LANSOPRAZOLE
     Dosage: 30 MILLIGRAM, QD
     Route: 048
     Dates: start: 20170728, end: 20170905
  4. ONDANSETRON [Concomitant]
     Active Substance: ONDANSETRON
     Indication: NAUSEA
     Dosage: 8 MILLIGRAM, TID
     Route: 048
     Dates: start: 20170809, end: 20170812
  5. TRIMETHOPRIM. [Concomitant]
     Active Substance: TRIMETHOPRIM
     Indication: URINARY TRACT INFECTION
     Dosage: SUSPENSION LIQUID
     Route: 065
     Dates: start: 20170915, end: 20170919
  6. TRASTUZUMAB EMTANSINE [Suspect]
     Active Substance: ADO-TRASTUZUMAB EMTANSINE
     Indication: BREAST CANCER METASTATIC
     Dosage: 240 MILLIGRAM, Q3W
     Route: 042
     Dates: start: 20161201
  7. TRASTUZUMAB EMTANSINE [Suspect]
     Active Substance: ADO-TRASTUZUMAB EMTANSINE
     Dosage: 200 MILLIGRAM, Q3W
     Route: 042
     Dates: start: 20170330, end: 20170608
  8. HALOPERIDOL. [Concomitant]
     Active Substance: HALOPERIDOL
     Dosage: 1.5 MILLIGRAM
     Route: 058
     Dates: start: 20170919, end: 20170920
  9. HYDROCORTISONE. [Concomitant]
     Active Substance: HYDROCORTISONE
     Dosage: 100 MILLIGRAM, 3XW
     Route: 042
     Dates: start: 20151022, end: 20160222
  10. MIDAZOLAM. [Concomitant]
     Active Substance: MIDAZOLAM
     Dosage: PALLIATIVECARE
     Route: 058
     Dates: start: 20170918, end: 20170920
  11. ZOLEDRONIC ACID [Concomitant]
     Active Substance: ZOLEDRONIC ACID
     Indication: CHEMOTHERAPY
     Dosage: PART OFANTICANCERTREATEMNT
     Route: 042
     Dates: start: 20151022, end: 20170713
  12. PERTUZUMAB. [Suspect]
     Active Substance: PERTUZUMAB
     Dosage: 840 MILLIGRAM, Q3W (LOADING DOSE)
     Route: 042
     Dates: start: 20151023, end: 20151023
  13. DEXAMETHASONE. [Concomitant]
     Active Substance: DEXAMETHASONE
     Dosage: 2 MILLIGRAM, QD
     Route: 048
     Dates: start: 20170728, end: 20170803
  14. DEXAMETHASONE. [Concomitant]
     Active Substance: DEXAMETHASONE
     Dosage: 4 MILLIGRAM, BID
     Route: 048
     Dates: start: 20170809, end: 20170919
  15. TRASTUZUMAB. [Suspect]
     Active Substance: TRASTUZUMAB
     Dosage: 400 MILLIGRAM, Q3W (MAINTENANCE DOSE)
     Route: 042
     Dates: start: 20151120, end: 20161104
  16. DOCETAXEL. [Suspect]
     Active Substance: DOCETAXEL
     Dosage: 108 MILLIGRAM, Q3W
     Route: 042
     Dates: start: 20151120
  17. CLOTRIMAZOLE. [Concomitant]
     Active Substance: CLOTRIMAZOLE
     Indication: VULVOVAGINAL CANDIDIASIS
     Dosage: 1 PERCENT, TID
     Route: 061
     Dates: start: 20170918, end: 20170920
  18. DOMPERIDONE [Concomitant]
     Active Substance: DOMPERIDONE
     Indication: NAUSEA
     Dosage: 10 MILLIGRAM, TID
     Route: 048
     Dates: start: 20170810, end: 20170919
  19. ZOPICLONE [Concomitant]
     Active Substance: ZOPICLONE
     Indication: INSOMNIA
     Dosage: 3.75 MILLIGRAM
     Route: 048
     Dates: start: 20170825, end: 20170919
  20. PERTUZUMAB. [Suspect]
     Active Substance: PERTUZUMAB
     Indication: BREAST CANCER METASTATIC
     Dosage: LOADING DOSE
     Route: 042
     Dates: start: 20151023, end: 20151023
  21. PERTUZUMAB. [Suspect]
     Active Substance: PERTUZUMAB
     Dosage: 420 MILLIGRAM, Q3W (MAINTENANCE DOSE)
     Route: 042
     Dates: start: 20151120
  22. DEXAMETHASONE. [Concomitant]
     Active Substance: DEXAMETHASONE
     Dosage: 8 MILLIGRAM, BID
     Route: 048
     Dates: start: 20170803, end: 20170809
  23. HALOPERIDOL. [Concomitant]
     Active Substance: HALOPERIDOL
     Indication: DEPRESSION
     Dosage: 1.5 MILLIGRAM, BID
     Route: 048
     Dates: start: 20170810, end: 20170909
  24. MICONAZOLE. [Concomitant]
     Active Substance: MICONAZOLE
     Dosage: 20 MILLIGRAM
     Route: 048
     Dates: start: 20170918, end: 20170920
  25. MORPHINE SULPHATE [Concomitant]
     Active Substance: MORPHINE SULFATE
     Dosage: PALLIATIVECARE
     Route: 058
     Dates: start: 20170918, end: 20170920
  26. CHLORAMPHENICOL [Concomitant]
     Active Substance: CHLORAMPHENICOL
     Indication: CONJUNCTIVITIS
     Dosage: 1 PERCENT
     Route: 047
     Dates: start: 20170918, end: 20170920
  27. FILGRASTIM [Concomitant]
     Active Substance: FILGRASTIM
     Dosage: 300 MICROGRAM, QD
     Route: 058
     Dates: start: 20151120, end: 20151127
  28. GLYCOPYRRONIUM [Concomitant]
     Active Substance: GLYCOPYRRONIUM
     Dosage: 400 MICROGRAM
     Route: 058
     Dates: start: 20170919, end: 20170920
  29. TRASTUZUMAB. [Suspect]
     Active Substance: TRASTUZUMAB
     Indication: BREAST CANCER METASTATIC
     Dosage: 525 MILLIGRAM, Q3W 9LOADING DOSE0
     Route: 042
     Dates: start: 20151023, end: 20151023
  30. DOCETAXEL. [Suspect]
     Active Substance: DOCETAXEL
     Indication: BREAST CANCER METASTATIC
     Dosage: 132 MILLIGRAM, Q3W
     Route: 042
     Dates: start: 20151022, end: 20151022
  31. CALCICHEW [Concomitant]
     Active Substance: CALCIUM CARBONATE
     Indication: HYPOCALCAEMIA
     Dosage: CHEWABLE
     Route: 048
     Dates: start: 20151231, end: 20171219
  32. CHLORPHENIRAMINE                   /00072501/ [Concomitant]
     Active Substance: CHLORPHENIRAMINE
     Dosage: 10 MILLIGRAM
     Route: 042
     Dates: start: 20151022, end: 20160222
  33. DEXAMETHASONE. [Concomitant]
     Active Substance: DEXAMETHASONE
     Dosage: 8 MILLIGRAM
     Route: 048
     Dates: start: 20151210, end: 20160222
  34. MIGRALEVE                          /01325801/ [Concomitant]
     Active Substance: ACETAMINOPHEN\BUCLIZINE HYDROCHLORIDE\CODEINE
     Indication: MIGRAINE
     Dosage: UNK
     Route: 048
     Dates: start: 2017
  35. NYSTATIN. [Concomitant]
     Active Substance: NYSTATIN
     Dosage: 10000 U LIQUID 03 SEP2017 } WHITECOATING ONTONGUE FUNGAL
     Route: 048
     Dates: start: 20170904, end: 20170919

REACTIONS (8)
  - Conjunctivitis [Recovered/Resolved]
  - Vulvovaginal candidiasis [Recovered/Resolved]
  - Neuropathy peripheral [Recovered/Resolved]
  - Nausea [Recovered/Resolved]
  - Insomnia [Recovered/Resolved]
  - Urinary tract infection [Recovered/Resolved]
  - Rectal haemorrhage [Fatal]
  - Oral candidiasis [Recovered/Resolved]

NARRATIVE: CASE EVENT DATE: 201705
